FAERS Safety Report 5904553-3 (Version None)
Quarter: 2008Q3

REPORT INFORMATION
  Report Type: 
  Country: None (occurrence: None)
  Receive Date: 20080909
  Receipt Date: 20071031
  Transmission Date: 20090109
  Serious: Yes (Hospitalization)
  Sender: FDA-Public Use
  Company Number: 163-20785-07101066

PATIENT
  Age: 72 Year
  Sex: Male

DRUGS (3)
  1. THALOMID [Suspect]
     Indication: MULTIPLE MYELOMA
     Dosage: 100-150MG, DAILY, ORAL : 200 MG, DAILY, ORAL : 100 MG, DAILY, ORAL
     Route: 048
     Dates: start: 20070518, end: 20070701
  2. THALOMID [Suspect]
     Indication: MULTIPLE MYELOMA
     Dosage: 100-150MG, DAILY, ORAL : 200 MG, DAILY, ORAL : 100 MG, DAILY, ORAL
     Route: 048
     Dates: start: 20070720, end: 20070901
  3. THALOMID [Suspect]
     Indication: MULTIPLE MYELOMA
     Dosage: 100-150MG, DAILY, ORAL : 200 MG, DAILY, ORAL : 100 MG, DAILY, ORAL
     Route: 048
     Dates: start: 20070907

REACTIONS (1)
  - PNEUMONIA [None]
